FAERS Safety Report 7413879-6 (Version None)
Quarter: 2011Q2

REPORT INFORMATION
  Report Type: 
  Country: None (occurrence: None)
  Receive Date: 20110414
  Receipt Date: 20110406
  Transmission Date: 20111010
  Serious: Yes (Other)
  Sender: FDA-Public Use
  Company Number: GB-BIOGENIDEC-2010BI033687

PATIENT
  Age: 42 Year
  Sex: Female

DRUGS (1)
  1. TYSABRI [Suspect]
     Indication: PRODUCT USED FOR UNKNOWN INDICATION
     Dates: start: 20070612, end: 20090901

REACTIONS (2)
  - COGNITIVE DISORDER [None]
  - MULTIPLE SCLEROSIS RELAPSE [None]
